FAERS Safety Report 25425984 (Version 4)
Quarter: 2025Q3

REPORT INFORMATION
  Report Type: Report from Study
  Country: TW (occurrence: TW)
  Receive Date: 20250612
  Receipt Date: 20250721
  Transmission Date: 20251021
  Serious: Yes (Hospitalization)
  Sender: ABBVIE
  Company Number: TW-ABBVIE-6311092

PATIENT
  Age: 63 Year
  Sex: Male

DRUGS (8)
  1. OZURDEX [Suspect]
     Active Substance: DEXAMETHASONE
     Indication: Diabetic retinal oedema
     Route: 050
     Dates: start: 20241202, end: 20241202
  2. LINAGLIPTIN [Concomitant]
     Active Substance: LINAGLIPTIN
     Indication: Type 2 diabetes mellitus
     Route: 048
     Dates: start: 20240521
  3. LIPITOR [Concomitant]
     Active Substance: ATORVASTATIN CALCIUM
     Indication: Hyperlipidaemia
     Route: 048
     Dates: start: 20240522
  4. TRENTAL [Concomitant]
     Active Substance: PENTOXIFYLLINE
     Indication: Chronic kidney disease
     Route: 048
     Dates: start: 20240415
  5. AMLODIPINE BESYLATE\OLMESARTAN MEDOXOMIL [Concomitant]
     Active Substance: AMLODIPINE BESYLATE\OLMESARTAN MEDOXOMIL
     Indication: Hypertension
     Dosage: 1 TABLET
     Route: 048
     Dates: start: 20240522
  6. DOXAZOSIN MESYLATE [Concomitant]
     Active Substance: DOXAZOSIN MESYLATE
     Indication: Hypertension
     Dosage: EVERY EVENING
     Route: 048
     Dates: start: 20240522
  7. CALCIUM ACETATE [Concomitant]
     Active Substance: CALCIUM ACETATE
     Indication: Chronic kidney disease
     Route: 048
     Dates: start: 20240731
  8. Scanol [Concomitant]
     Indication: Pyrexia
     Route: 048
     Dates: start: 20250526, end: 20250526

REACTIONS (1)
  - Serratia bacteraemia [Recovered/Resolved]

NARRATIVE: CASE EVENT DATE: 20250602
